FAERS Safety Report 14814686 (Version 2)
Quarter: 2018Q2

REPORT INFORMATION
  Report Type: Spontaneous
  Country: UA (occurrence: UA)
  Receive Date: 20180426
  Receipt Date: 20180428
  Transmission Date: 20180711
  Serious: Yes (Death)
  Sender: FDA-Public Use
  Company Number: UA-ROCHE-2056976

PATIENT
  Age: 68 Year
  Sex: Male

DRUGS (1)
  1. TECENTRIQ [Suspect]
     Active Substance: ATEZOLIZUMAB
     Indication: METASTATIC CARCINOMA OF THE BLADDER
     Route: 065
     Dates: start: 20171011, end: 2018

REACTIONS (2)
  - Drug ineffective [Unknown]
  - Death [Fatal]

NARRATIVE: CASE EVENT DATE: 2018
